FAERS Safety Report 6731927-3 (Version None)
Quarter: 2010Q2

REPORT INFORMATION
  Report Type: 
  Country: None (occurrence: None)
  Receive Date: 20100519
  Receipt Date: 20100507
  Transmission Date: 20101027
  Serious: Yes (Other)
  Sender: FDA-Public Use
  Company Number: FI-PFIZER INC-2010058169

PATIENT
  Age: 67 Year
  Sex: Female

DRUGS (1)
  1. LYRICA [Suspect]
     Indication: NEURALGIA
     Dosage: 75 MG, 2X/DAY
     Dates: start: 20100301, end: 20100101

REACTIONS (2)
  - ARRHYTHMIA [None]
  - MEDICATION ERROR [None]
